FAERS Safety Report 5262861-6 (Version None)
Quarter: 2007Q1

REPORT INFORMATION
  Report Type: 
  Country: None (occurrence: None)
  Receive Date: 20070312
  Receipt Date: 20070312
  Transmission Date: 20070707
  Serious: Yes (Hospitalization)
  Sender: FDA-Public Use
  Company Number: US-GLAXOSMITHKLINE-A0642525A

PATIENT
  Age: 72 Year
  Sex: Female

DRUGS (4)
  1. COMMIT [Suspect]
     Indication: SMOKING CESSATION THERAPY
     Dosage: 2MG UNKNOWN
     Route: 002
     Dates: start: 20051005
  2. ACTONEL [Concomitant]
  3. ZOCOR [Concomitant]
  4. SYNTHROID [Concomitant]

REACTIONS (2)
  - HEART RATE INCREASED [None]
  - INTENTIONAL DRUG MISUSE [None]
